FAERS Safety Report 9257999 (Version 2)
Quarter: 2013Q2

REPORT INFORMATION
  Report Type: Spontaneous
  Country: BR (occurrence: None)
  Receive Date: 20130423
  Receipt Date: 20130501
  Transmission Date: 20140414
  Serious: Yes (Hospitalization)
  Sender: FDA-Public Use
  Company Number: BR-20130059

PATIENT
  Age: 66 Year
  Sex: Female

DRUGS (2)
  1. DOTAREM [Suspect]
     Indication: NUCLEAR MAGNETIC RESONANCE IMAGING
     Dosage: 10 ML (10 ML, 1 IN 1 TOTAL)
     Route: 042
     Dates: start: 20130321, end: 20130321
  2. SALINE (SODIUM CHLORIDE)(SODIUM CHLORIDE) 0.9 PCT [Concomitant]

REACTIONS (4)
  - Hyperaemia [None]
  - Pruritus generalised [None]
  - Malaise [None]
  - Paraesthesia oral [None]
